FAERS Safety Report 21634430 (Version 1)
Quarter: 2022Q4

REPORT INFORMATION
  Report Type: Spontaneous
  Country: US (occurrence: None)
  Receive Date: 20221123
  Receipt Date: 20221123
  Transmission Date: 20230113
  Serious: No
  Sender: FDA-Public Use
  Company Number: None

PATIENT
  Age: 64 Year
  Sex: Male
  Weight: 83 kg

DRUGS (2)
  1. NIVOLUMAB [Suspect]
     Active Substance: NIVOLUMAB
     Indication: Non-small cell lung cancer
     Dosage: OTHER FREQUENCY : ONCE EVERY 21 DAYS;?
     Route: 042
     Dates: start: 20221121, end: 20221121
  2. NIVOLUMAB [Suspect]
     Active Substance: NIVOLUMAB
     Dosage: OTHER FREQUENCY : ONCE EVERY 21 DAYS;?
     Route: 042
     Dates: start: 20221121, end: 20221121

REACTIONS (2)
  - Back pain [None]
  - Infusion related reaction [None]

NARRATIVE: CASE EVENT DATE: 20221121
